FAERS Safety Report 17925040 (Version 3)
Quarter: 2020Q3

REPORT INFORMATION
  Report Type: Spontaneous
  Country: JP (occurrence: JP)
  Receive Date: 20200622
  Receipt Date: 20200810
  Transmission Date: 20201103
  Serious: Yes (Hospitalization, Other)
  Sender: FDA-Public Use
  Company Number: JP-009507513-2006JPN001525J

PATIENT
  Age: 61 Year
  Sex: Male
  Weight: 57 kg

DRUGS (6)
  1. PREDNISOLONE. [Concomitant]
     Active Substance: PREDNISOLONE
     Indication: PNEUMONIA
     Dosage: 30 MILLIGRAM, QD
     Route: 048
     Dates: start: 20190521, end: 20190612
  2. LANSOPRAZOLE OD [Suspect]
     Active Substance: LANSOPRAZOLE
     Indication: PROPHYLAXIS
     Dosage: 15 MILLIGRAM, QD
     Route: 048
     Dates: start: 20190421, end: 20190613
  3. ONEALFA [Concomitant]
     Active Substance: ALFACALCIDOL
     Indication: OSTEOPOROSIS PROPHYLAXIS
     Dosage: 0.5 MICROGRAM, QD
     Route: 048
     Dates: start: 20190425, end: 20190613
  4. BACTRAMIN [Suspect]
     Active Substance: SULFAMETHOXAZOLE\TRIMETHOPRIM
     Indication: INFECTION PROPHYLAXIS
     Dosage: 1 DOSAGE FORM, QD
     Route: 048
     Dates: start: 20190421, end: 20190613
  5. FOSAMAC TABLETS 35MG [Suspect]
     Active Substance: ALENDRONATE SODIUM
     Indication: OSTEOPOROSIS PROPHYLAXIS
     Dosage: 35 MILLIGRAM, QW
     Route: 048
     Dates: start: 20190425, end: 20190613
  6. CALCIUM LACTATE HYDRATE [Concomitant]
     Active Substance: CALCIUM LACTATE
     Indication: ELECTROLYTE SUBSTITUTION THERAPY
     Dosage: 1 GRAM, TID
     Route: 048
     Dates: start: 20190425, end: 20190613

REACTIONS (1)
  - Oculomucocutaneous syndrome [Recovered/Resolved]

NARRATIVE: CASE EVENT DATE: 20190612
